FAERS Safety Report 15745185 (Version 1)
Quarter: 2018Q4

REPORT INFORMATION
  Report Type: Spontaneous
  Country: US (occurrence: US)
  Receive Date: 20181220
  Receipt Date: 20181220
  Transmission Date: 20190205
  Serious: No
  Sender: FDA-Public Use
  Company Number: US-ADAMAS PHARMA, LLC-2018ADA02418

PATIENT
  Age: 46 Year
  Sex: Male
  Weight: 97.5 kg

DRUGS (17)
  1. SINEMET [Concomitant]
     Active Substance: CARBIDOPA\LEVODOPA
     Dosage: 2 TABLETS, 5X/DAY
     Route: 048
  2. MELATONIN [Concomitant]
     Active Substance: MELATONIN
     Route: 048
  3. MULTIVITAMIN [Concomitant]
     Active Substance: VITAMINS
     Route: 048
  4. CARBIDOPA-LEVODOPA CR [Concomitant]
     Dosage: 2 TABLETS, 1X/DAY AT BEDTIME
     Route: 048
  5. KLONOPIN [Concomitant]
     Active Substance: CLONAZEPAM
     Dosage: 1 MG, 1X/DAY NIGHTLY
     Route: 048
  6. VENLAFAXINE XR [Concomitant]
     Active Substance: VENLAFAXINE HYDROCHLORIDE
     Dosage: 150 MG, 1X/DAY
     Route: 048
  7. ROPINIROLE. [Concomitant]
     Active Substance: ROPINIROLE
     Dosage: 12 MG, 1X/DAY
     Route: 048
  8. GOCOVRI [Suspect]
     Active Substance: AMANTADINE
     Dosage: 274 MG, 1X/DAY QHS
     Route: 048
     Dates: end: 20180731
  9. ELDEPRYL [Concomitant]
     Active Substance: SELEGILINE HYDROCHLORIDE
     Dosage: 5 MG, 2X/DAY
     Route: 048
  10. GOCOVRI [Suspect]
     Active Substance: AMANTADINE
     Dosage: UNK
  11. LORATADINE. [Concomitant]
     Active Substance: LORATADINE
     Route: 048
  12. LIORESAL [Concomitant]
     Active Substance: BACLOFEN
     Dosage: 20 MG, UP TO 2X/DAY AS NEEDED
  13. ROPINIROLE. [Concomitant]
     Active Substance: ROPINIROLE
     Dosage: 12 MG, 1X/DAY
     Route: 048
  14. GOCOVRI [Suspect]
     Active Substance: AMANTADINE
     Indication: DYSKINESIA
     Dosage: 137 MG, 1X/DAY AT BEDTIME
     Route: 048
     Dates: start: 20180219
  15. SINEMET [Concomitant]
     Active Substance: CARBIDOPA\LEVODOPA
     Dosage: 1 TABLETS, 2X/DAY AS NEEDED
     Route: 048
  16. VALIUM [Concomitant]
     Active Substance: DIAZEPAM
     Dosage: 4 MG, 1X/DAY NIGHTLY AS NEEDED
     Route: 048
  17. REMERON [Concomitant]
     Active Substance: MIRTAZAPINE
     Dosage: 60 MG, 1X/DAY NIGHTLY
     Route: 048

REACTIONS (1)
  - Peripheral swelling [Recovered/Resolved]

NARRATIVE: CASE EVENT DATE: 20180514
